FAERS Safety Report 25868480 (Version 4)
Quarter: 2025Q4

REPORT INFORMATION
  Report Type: Spontaneous
  Country: JP (occurrence: JP)
  Receive Date: 20251001
  Receipt Date: 20251225
  Transmission Date: 20260118
  Serious: Yes (Other)
  Sender: BRISTOL-MYERS SQUIBB COMPANY
  Company Number: JP-TAIHO-2025-010331

PATIENT
  Age: 9 Decade

DRUGS (4)
  1. ABRAXANE [Suspect]
     Active Substance: PACLITAXEL
     Indication: Non-small cell lung cancer
     Dosage: NI, CYCLE 2, WITH SUSPENSION
     Route: 041
  2. ABRAXANE [Suspect]
     Active Substance: PACLITAXEL
     Indication: Interstitial lung disease
     Dosage: NI, CYCLE 3
     Route: 041
  3. CARBOPLATIN [Concomitant]
     Active Substance: CARBOPLATIN
     Indication: Non-small cell lung cancer
     Dosage: NI, CYCLE 2, WITH SUSPENSION
  4. CARBOPLATIN [Concomitant]
     Active Substance: CARBOPLATIN
     Indication: Interstitial lung disease
     Dosage: NI, CYCLE 3

REACTIONS (2)
  - Febrile neutropenia [Recovering/Resolving]
  - Fatigue [Unknown]
